FAERS Safety Report 8111479-6 (Version None)
Quarter: 2012Q1

REPORT INFORMATION
  Report Type: 
  Country: None (occurrence: None)
  Receive Date: 20120203
  Receipt Date: 20120130
  Transmission Date: 20120608
  Serious: Yes (Life-Threatening)
  Sender: FDA-Public Use
  Company Number: FR-BRISTOL-MYERS SQUIBB COMPANY-15970338

PATIENT
  Age: 49 Year
  Sex: Male

DRUGS (3)
  1. CISPLATIN [Suspect]
     Indication: OESOPHAGEAL CARCINOMA
     Dates: start: 20071023, end: 20071120
  2. CETUXIMAB [Suspect]
     Indication: OESOPHAGEAL CARCINOMA
     Dates: start: 20071015, end: 20071120
  3. FLUOROURACIL [Suspect]
     Indication: OESOPHAGEAL CARCINOMA
     Dates: start: 20071023, end: 20071120

REACTIONS (1)
  - CHYLOTHORAX [None]
